FAERS Safety Report 8128128-3 (Version None)
Quarter: 2012Q1

REPORT INFORMATION
  Report Type: 
  Country: None (occurrence: None)
  Receive Date: 20120210
  Receipt Date: 20120206
  Transmission Date: 20120608
  Serious: Yes (Death)
  Sender: FDA-Public Use
  Company Number: FR-JNJFOC-20111004802

PATIENT
  Sex: Male
  Weight: 71 kg

DRUGS (3)
  1. ABIRATERONE ACETATE [Suspect]
     Indication: PROSTATE CANCER
     Route: 048
     Dates: start: 20110802, end: 20110816
  2. ABIRATERONE ACETATE [Suspect]
     Route: 048
  3. PREDNISONE TAB [Suspect]
     Indication: PROSTATE CANCER
     Route: 048

REACTIONS (2)
  - SEPTIC SHOCK [None]
  - SYSTEMIC INFLAMMATORY RESPONSE SYNDROME [None]
